FAERS Safety Report 4841436-4 (Version None)
Quarter: 2005Q4

REPORT INFORMATION
  Report Type: 
  Country: None (occurrence: None)
  Receive Date: 20051130
  Receipt Date: 20050816
  Transmission Date: 20060501
  Serious: Yes (Death, Hospitalization, Disabling)
  Sender: FDA-Public Use
  Company Number: US-MERCK-0508USA03095

PATIENT
  Age: 70 Year
  Sex: Female
  Weight: 39 kg

DRUGS (5)
  1. VIOXX [Suspect]
     Indication: ARTHRITIS
     Route: 048
     Dates: start: 20030130
  2. VIOXX [Suspect]
     Route: 048
     Dates: end: 20030820
  3. VIOXX [Suspect]
     Indication: PROCEDURAL PAIN
     Route: 048
     Dates: start: 20030130
  4. VIOXX [Suspect]
     Route: 048
     Dates: end: 20030820
  5. ESTRADERM [Concomitant]
     Indication: HORMONE REPLACEMENT THERAPY
     Route: 065
     Dates: start: 19960101, end: 20030101

REACTIONS (9)
  - ASTHENIA [None]
  - DIZZINESS [None]
  - FALL [None]
  - HEAD INJURY [None]
  - HYPOXIA [None]
  - INFECTIVE EXACERBATION OF CHRONIC OBSTRUCTIVE AIRWAYS DISEASE [None]
  - MYOCARDIAL INFARCTION [None]
  - PNEUMONIA [None]
  - ROTATOR CUFF SYNDROME [None]
